FAERS Safety Report 23191966 (Version 1)
Quarter: 2023Q4

REPORT INFORMATION
  Report Type: Spontaneous
  Country: US (occurrence: US)
  Receive Date: 20231116
  Receipt Date: 20231116
  Transmission Date: 20240109
  Serious: No
  Sender: FDA-Public Use
  Company Number: US-OPELLA-2023OHG013915

PATIENT
  Sex: Female

DRUGS (1)
  1. DULCOLAX LIQUID (MAGNESIUM HYDROXIDE) [Suspect]
     Active Substance: MAGNESIUM HYDROXIDE
     Indication: Product used for unknown indication
     Dosage: 1200MG/15ML
     Route: 065

REACTIONS (1)
  - Abdominal pain upper [Unknown]

NARRATIVE: CASE EVENT DATE: 20230101
